FAERS Safety Report 6424430-1 (Version None)
Quarter: 2009Q4

REPORT INFORMATION
  Report Type: 
  Country: None (occurrence: None)
  Receive Date: 20091029
  Receipt Date: 20091009
  Transmission Date: 20100525
  Serious: Yes (Other)
  Sender: FDA-Public Use
  Company Number: JPI-P-008651

PATIENT
  Age: 50 Year
  Sex: Male

DRUGS (11)
  1. FLUVOXAMINE MALEATE [Suspect]
     Indication: DEPRESSION
     Dosage: (50 MG,1 D),ORAL ; (100 MG,1 D), ORAL ; (150 MG,1 D), ORAL ; (50 MG,1 D), ORAL
     Route: 048
     Dates: start: 20090807, end: 20090813
  2. FLUVOXAMINE MALEATE [Suspect]
     Indication: DEPRESSION
     Dosage: (50 MG,1 D),ORAL ; (100 MG,1 D), ORAL ; (150 MG,1 D), ORAL ; (50 MG,1 D), ORAL
     Route: 048
     Dates: start: 20090814, end: 20090827
  3. FLUVOXAMINE MALEATE [Suspect]
     Indication: DEPRESSION
     Dosage: (50 MG,1 D),ORAL ; (100 MG,1 D), ORAL ; (150 MG,1 D), ORAL ; (50 MG,1 D), ORAL
     Route: 048
     Dates: start: 20090828, end: 20090910
  4. FLUVOXAMINE MALEATE [Suspect]
     Indication: DEPRESSION
     Dosage: (50 MG,1 D),ORAL ; (100 MG,1 D), ORAL ; (150 MG,1 D), ORAL ; (50 MG,1 D), ORAL
     Route: 048
     Dates: start: 20090911
  5. PAROXETINE HYDROCHLORIDE [Concomitant]
  6. AMOXAPINE [Concomitant]
  7. SULPIRIDE [Concomitant]
  8. FLUNITRAZEPAM [Concomitant]
  9. TRIAZOLAM [Concomitant]
  10. ALPRAZOLAM [Concomitant]
  11. SERTRALINE HYDROCHLORIDE [Concomitant]

REACTIONS (4)
  - ANXIETY [None]
  - IMPULSE-CONTROL DISORDER [None]
  - INSOMNIA [None]
  - IRRITABILITY [None]
